FAERS Safety Report 7702200-1 (Version None)
Quarter: 2011Q3

REPORT INFORMATION
  Report Type: 
  Country: None (occurrence: None)
  Receive Date: 20110822
  Receipt Date: 20110812
  Transmission Date: 20111222
  Serious: Yes (Hospitalization, Other)
  Sender: FDA-Public Use
  Company Number: US-ASTRAZENECA-2010SE20642

PATIENT
  Age: 82 Year
  Sex: Female

DRUGS (1)
  1. NEXIUM [Suspect]
     Route: 048
     Dates: start: 20050101

REACTIONS (8)
  - ANXIETY [None]
  - MACULAR DEGENERATION [None]
  - DEPRESSION [None]
  - GASTRIC DISORDER [None]
  - DRUG DOSE OMISSION [None]
  - CATARACT [None]
  - BARRETT'S OESOPHAGUS [None]
  - MALAISE [None]
